FAERS Safety Report 13727009 (Version 1)
Quarter: 2017Q3

REPORT INFORMATION
  Report Type: Spontaneous
  Country: JP (occurrence: JP)
  Receive Date: 20170706
  Receipt Date: 20170706
  Transmission Date: 20171127
  Serious: Yes (Other)
  Sender: FDA-Public Use
  Company Number: JP-PFIZER INC-2016598140

PATIENT
  Age: 14 Year
  Sex: Male
  Weight: 50 kg

DRUGS (16)
  1. ATARAX-P [Concomitant]
     Active Substance: HYDROXYZINE HYDROCHLORIDE
     Indication: SEDATION
     Dosage: 25 MG, 1X/DAY
     Dates: start: 20161219, end: 20161219
  2. MAGNESIUM OXIDE. [Concomitant]
     Active Substance: MAGNESIUM OXIDE
     Indication: CONSTIPATION
     Dosage: 1 DF, 2X/DAY
     Route: 048
     Dates: start: 20160715
  3. MEYLON [Concomitant]
     Active Substance: SODIUM BICARBONATE
     Dosage: 80 ML, 4X/DAY
     Dates: start: 20161220, end: 20161221
  4. METHOTREXATE 1000MG [Suspect]
     Active Substance: METHOTREXATE
     Indication: PRECURSOR T-LYMPHOBLASTIC LYMPHOMA/LEUKAEMIA
     Dosage: 7500 MG, WEEKLY
     Route: 042
     Dates: start: 20161219, end: 20161220
  5. FLUCONAZOLE. [Concomitant]
     Active Substance: FLUCONAZOLE
     Indication: INFECTION PROPHYLAXIS
     Dosage: 200 MG, 1X/DAY
     Route: 048
     Dates: start: 20160713
  6. SODIUM PICOSULFATE [Concomitant]
     Active Substance: SODIUM PICOSULFATE
     Indication: CONSTIPATION
     Dosage: 2 DF, 1X/DAY
     Route: 048
     Dates: start: 20160719
  7. MIDAZOLAM [Concomitant]
     Active Substance: MIDAZOLAM HYDROCHLORIDE
     Indication: SEDATION
     Dosage: 10 MG, 1X/DAY
     Dates: start: 20161219, end: 20161219
  8. GRANISETRON [Concomitant]
     Active Substance: GRANISETRON
     Indication: PROPHYLAXIS OF NAUSEA AND VOMITING
     Dosage: 2 MG, 2X/DAY
     Dates: start: 20161219, end: 20161222
  9. DAI-KENCHU-TO [Concomitant]
     Active Substance: MALTOSE
     Indication: CONSTIPATION
     Dosage: 2 DF, 2X/DAY
     Route: 048
     Dates: start: 20160811
  10. LASIX [Concomitant]
     Active Substance: FUROSEMIDE
     Indication: PROPHYLAXIS
     Dosage: 10 MG, 3X/DAY
     Dates: start: 20161220, end: 20161222
  11. PENTAGIN [Concomitant]
     Active Substance: PENTAZOCINE HYDROCHLORIDE
     Indication: SEDATION
     Dosage: 15 MG, 1X/DAY
     Dates: start: 20161219, end: 20161219
  12. LEUKERIN [Concomitant]
     Active Substance: MERCAPTOPURINE
     Dosage: 37 MG, 1X/DAY
     Route: 048
     Dates: end: 20161226
  13. DIAMOX SEQUELS [Concomitant]
     Active Substance: ACETAZOLAMIDE
     Indication: PROPHYLAXIS
     Dosage: 250 MG, 4X/DAY
     Dates: start: 20161219, end: 20161222
  14. EMEND [Suspect]
     Active Substance: APREPITANT
     Indication: PROPHYLAXIS OF NAUSEA AND VOMITING
     Dosage: 125 MG, 1X/DAY
     Route: 048
     Dates: start: 20161219, end: 20161219
  15. URSODEOXYCHOLIC ACID [Concomitant]
     Active Substance: URSODIOL
     Indication: HEPATIC FUNCTION ABNORMAL
     Dosage: 1 DF, 3X/DAY
     Route: 048
     Dates: start: 20160717
  16. NEOPHAGEN [Concomitant]
     Active Substance: GLYCYRRHIZIN
     Indication: HEPATIC FUNCTION ABNORMAL
     Dosage: 20 ML, 1X/DAY
     Dates: start: 20161221, end: 20161226

REACTIONS (3)
  - External ear disorder [Recovered/Resolved]
  - Ear canal stenosis [Recovered/Resolved]
  - Deafness neurosensory [Recovered/Resolved]

NARRATIVE: CASE EVENT DATE: 20161221
